FAERS Safety Report 8480811-6 (Version None)
Quarter: 2012Q3

REPORT INFORMATION
  Report Type: 
  Country: None (occurrence: None)
  Receive Date: 20120702
  Receipt Date: 20120621
  Transmission Date: 20120928
  Serious: Yes (Hospitalization)
  Sender: FDA-Public Use
  Company Number: US-BAYER-2012-018957

PATIENT
  Age: 15 Year
  Sex: Female
  Weight: 54.422 kg

DRUGS (17)
  1. YAZ [Suspect]
  2. HYDROCODONE BITARTRATE AND ACETAMINOPHEN [Concomitant]
     Dosage: 5-500 MG
     Dates: start: 20090819
  3. AMITRIPTYLINE HCL [Concomitant]
     Dosage: UNK
     Dates: start: 20090819
  4. YASMIN [Suspect]
     Indication: ACNE
     Dosage: UNK
     Dates: start: 20080301, end: 20090101
  5. DROSPIRENONE AND ETHINYL ESTRADIOL [Suspect]
  6. DONNATAL [Concomitant]
     Dosage: UNK
     Dates: start: 20091015
  7. FOCALIN [Concomitant]
  8. VICODIN [Concomitant]
     Indication: PAIN
  9. EFFEXOR [Concomitant]
  10. YASMIN [Suspect]
  11. DROSPIRENONE AND ETHINYL ESTRADIOL [Suspect]
     Indication: PREMENSTRUAL SYNDROME
  12. YASMIN [Suspect]
     Indication: PREMENSTRUAL SYNDROME
  13. DONNATAL [Concomitant]
     Dosage: UNK
     Dates: start: 20090614
  14. DICYCLOMINE [Concomitant]
  15. DROSPIRENONE AND ETHINYL ESTRADIOL [Suspect]
     Indication: ACNE
     Dosage: UNK
     Dates: start: 20090101, end: 20090801
  16. CONCERTA [Concomitant]
     Dosage: UNK
     Dates: start: 20090926, end: 20091014
  17. AMITRIPTYLINE HCL [Concomitant]
     Dosage: 10 MG, UNK
     Dates: start: 20090816

REACTIONS (5)
  - PAIN [None]
  - BILIARY DYSKINESIA [None]
  - INJURY [None]
  - ABDOMINAL PAIN UPPER [None]
  - ABDOMINAL PAIN [None]
